FAERS Safety Report 5615731-5 (Version None)
Quarter: 2008Q1

REPORT INFORMATION
  Report Type: 
  Country: None (occurrence: None)
  Receive Date: 20080201
  Receipt Date: 20080122
  Transmission Date: 20080703
  Serious: Yes (Hospitalization)
  Sender: FDA-Public Use
  Company Number: 2008S1000108

PATIENT
  Age: 78 Year
  Sex: Female
  Weight: 94.3482 kg

DRUGS (25)
  1. FENTANYL TRANSDERMAL SYSTEM [Suspect]
     Indication: ARTHRALGIA
     Dosage: 100 UG/HR; EVERY 3 DAYS, TRANSDERMAL; 200 UG/HR; X1; TRANSDERMAL
     Route: 062
     Dates: end: 20080101
  2. FENTANYL TRANSDERMAL SYSTEM [Suspect]
     Indication: BACK PAIN
     Dosage: 100 UG/HR; EVERY 3 DAYS, TRANSDERMAL; 200 UG/HR; X1; TRANSDERMAL
     Route: 062
     Dates: end: 20080101
  3. FENTANYL TRANSDERMAL SYSTEM [Suspect]
     Indication: ARTHRALGIA
     Dosage: 100 UG/HR; EVERY 3 DAYS, TRANSDERMAL; 200 UG/HR; X1; TRANSDERMAL
     Route: 062
     Dates: start: 20080101
  4. FENTANYL TRANSDERMAL SYSTEM [Suspect]
     Indication: BACK PAIN
     Dosage: 100 UG/HR; EVERY 3 DAYS, TRANSDERMAL; 200 UG/HR; X1; TRANSDERMAL
     Route: 062
     Dates: start: 20080101
  5. PERCOCET [Concomitant]
  6. KLOR-CON [Concomitant]
  7. RELAFEN [Concomitant]
  8. NEXIUM [Concomitant]
  9. OYSCO [Concomitant]
  10. ACTOS [Concomitant]
  11. ALBUTEROL [Concomitant]
  12. NORVASC [Concomitant]
  13. ATROVENT [Concomitant]
  14. LIDODERM [Concomitant]
  15. DULCOLAX [Concomitant]
  16. CELEBREX [Concomitant]
  17. KLONOPIN [Concomitant]
  18. COZAAR [Concomitant]
  19. CULTERELLE [Concomitant]
  20. COLACE [Concomitant]
  21. EXELON [Concomitant]
  22. PROZAC [Concomitant]
  23. HYDROCHLOROTHIAZIDE [Concomitant]
  24. AMBIEN [Concomitant]
  25. NOVOLOG [Concomitant]

REACTIONS (11)
  - BODY TEMPERATURE INCREASED [None]
  - DRUG EFFECT INCREASED [None]
  - GENERAL PHYSICAL HEALTH DETERIORATION [None]
  - OVERDOSE [None]
  - OXYGEN SATURATION DECREASED [None]
  - PNEUMONIA [None]
  - PULMONARY OEDEMA [None]
  - RESPIRATORY DISTRESS [None]
  - SEDATION [None]
  - UNRESPONSIVE TO STIMULI [None]
  - WRONG TECHNIQUE IN DRUG USAGE PROCESS [None]
